FAERS Safety Report 6236832-7 (Version None)
Quarter: 2009Q2

REPORT INFORMATION
  Report Type: 
  Country: None (occurrence: None)
  Receive Date: 20090619
  Receipt Date: 20090611
  Transmission Date: 20091009
  Serious: Yes (Hospitalization)
  Sender: FDA-Public Use
  Company Number: GB-AMGEN-UK301348

PATIENT
  Sex: Female

DRUGS (3)
  1. PANITUMUMAB [Suspect]
     Indication: SQUAMOUS CELL CARCINOMA
     Route: 042
     Dates: start: 20080516
  2. CISPLATIN [Suspect]
  3. FLUOROURACIL [Suspect]

REACTIONS (1)
  - CATHETER SEPSIS [None]
